FAERS Safety Report 19271503 (Version 3)
Quarter: 2021Q2

REPORT INFORMATION
  Report Type: Spontaneous
  Country: JP (occurrence: JP)
  Receive Date: 20210519
  Receipt Date: 20210624
  Transmission Date: 20210717
  Serious: Yes (Other)
  Sender: FDA-Public Use
  Company Number: JP-ABBVIE-21K-087-3909842-00

PATIENT
  Age: 73 Year
  Sex: Male

DRUGS (4)
  1. APREMILAST [Concomitant]
     Active Substance: APREMILAST
     Indication: PRODUCT USED FOR UNKNOWN INDICATION
     Dosage: STARTED 3 TO 4 YEARS BEFORE
  2. RABEPRAZOLE SODIUM. [Concomitant]
     Active Substance: RABEPRAZOLE SODIUM
     Indication: GASTROOESOPHAGEAL REFLUX DISEASE
     Route: 048
     Dates: start: 201812
  3. SKYRIZI [Suspect]
     Active Substance: RISANKIZUMAB-RZAA
     Indication: PSORIASIS
     Route: 058
     Dates: start: 20200907, end: 20210322
  4. CICLOSPORIN [Concomitant]
     Active Substance: CYCLOSPORINE
     Indication: PRODUCT USED FOR UNKNOWN INDICATION
     Dosage: STARTED 3 TO 4 YEARS BEFORE

REACTIONS (1)
  - Lip and/or oral cavity cancer [Not Recovered/Not Resolved]

NARRATIVE: CASE EVENT DATE: 20210513
